FAERS Safety Report 14974743 (Version 3)
Quarter: 2018Q3

REPORT INFORMATION
  Report Type: Report from Study
  Country: GB (occurrence: DE)
  Receive Date: 20180605
  Receipt Date: 20180709
  Transmission Date: 20181010
  Serious: Yes (Death, Other)
  Sender: FDA-Public Use
  Company Number: GB-PFIZER INC-2018227930

PATIENT
  Age: 58 Year
  Sex: Female
  Weight: 54 kg

DRUGS (51)
  1. TRENTAL [Suspect]
     Active Substance: PENTOXIFYLLINE
     Indication: CARDIOVASCULAR DISORDER
     Dosage: 1200 MG, QD
     Route: 048
     Dates: start: 19950117, end: 19950124
  2. XANEF /00574902/ [Suspect]
     Active Substance: ENALAPRIL MALEATE
     Dosage: UNK
  3. TELEBRIX /01047301/ [Suspect]
     Active Substance: MEGLUMINE IOXITHALAMATE\SODIUM IOXITHALAMATE
     Indication: X-RAY
     Dosage: UNK
     Route: 048
     Dates: start: 19950115, end: 19950115
  4. ADALAT [Concomitant]
     Active Substance: NIFEDIPINE
     Indication: HYPERTENSION
     Dosage: 1 DF, QD
     Route: 048
     Dates: start: 19941228, end: 19941228
  5. PEPDUL [Concomitant]
     Indication: ULCER
     Dosage: 1 DF, QD
     Route: 048
     Dates: end: 19950117
  6. LOPIRIN COR [Concomitant]
     Active Substance: CAPTOPRIL
     Indication: HYPERTENSION
     Dosage: 1 DF, QD
     Route: 048
     Dates: start: 19941229, end: 19941229
  7. CALCIUM CITRATE [Concomitant]
     Active Substance: CALCIUM CITRATE
     Indication: METABOLIC ACIDOSIS
     Dosage: 4 DF, QD
     Route: 048
     Dates: start: 19950119
  8. REMESTAN [Suspect]
     Active Substance: TEMAZEPAM
     Indication: SLEEP DISORDER
     Dosage: 1 DF, QD
     Route: 048
     Dates: end: 19950113
  9. FLUIMUCIL [Suspect]
     Active Substance: ACETYLCYSTEINE
     Indication: COUGH
     Dosage: 3 DF, QD
     Route: 048
     Dates: start: 19950117, end: 19950118
  10. ERYPO /00928302/ [Suspect]
     Active Substance: ERYTHROPOIETIN
     Dosage: 2000 IU, QD
     Route: 058
     Dates: start: 19950110, end: 19950110
  11. ERYPO /00928302/ [Suspect]
     Active Substance: ERYTHROPOIETIN
     Dosage: 2000 IU, QD
     Route: 058
     Dates: start: 19950117, end: 19950117
  12. XANEF /00574902/ [Suspect]
     Active Substance: ENALAPRIL MALEATE
     Indication: HYPERTENSION
     Dosage: 1 DF, QD
     Route: 048
     Dates: start: 19941230, end: 19950124
  13. PURSENNIDE /00571901/ [Suspect]
     Active Substance: SENNOSIDES A AND B
     Indication: CONSTIPATION
     Dosage: UNK
     Route: 048
     Dates: start: 19950113, end: 19950114
  14. IMUREK /00001501/ [Suspect]
     Active Substance: AZATHIOPRINE
     Indication: SCLERODERMA
     Dosage: UNK
     Route: 048
     Dates: start: 19950113, end: 19950116
  15. TAVEGIL /00137202/ [Concomitant]
     Indication: HYPERSENSITIVITY
     Dosage: UNK
     Route: 042
     Dates: start: 19950117, end: 19950117
  16. ARELIX /00630801/ [Concomitant]
     Indication: HYPERTENSION
     Dosage: 1 DF, QD
     Route: 048
     Dates: start: 19941228, end: 19941228
  17. URBASON [Concomitant]
     Active Substance: METHYLPREDNISOLONE
     Indication: SCLERODERMA
     Dosage: UNK
     Route: 048
  18. ROHYPNOL [Suspect]
     Active Substance: FLUNITRAZEPAM
     Indication: SLEEP DISORDER
     Dosage: 1 DF, QD
     Route: 048
     Dates: start: 19950114, end: 19950123
  19. PLACEBO [Suspect]
     Active Substance: UNSPECIFIED INGREDIENT
     Dosage: UNK
     Route: 048
     Dates: start: 19950115, end: 19950115
  20. SOLU?DECORTIN?H LIFE [Concomitant]
     Indication: HYPERSENSITIVITY
     Dosage: UNK
     Route: 042
     Dates: start: 19950117, end: 19950117
  21. ANTRA [Concomitant]
     Active Substance: OMEPRAZOLE
     Indication: ULCER
     Dosage: 2 DF, QD
     Route: 048
     Dates: start: 19950118, end: 19950124
  22. ZANTAC [Concomitant]
     Active Substance: RANITIDINE HYDROCHLORIDE
     Indication: HYPERSENSITIVITY
     Dosage: UNK
     Route: 042
     Dates: start: 19950117, end: 19950117
  23. IMODIUM [Concomitant]
     Active Substance: LOPERAMIDE HYDROCHLORIDE
     Indication: DIARRHOEA
     Dosage: UNK
     Route: 048
     Dates: start: 19950118, end: 19950119
  24. FLUIMUCIL [Suspect]
     Active Substance: ACETYLCYSTEINE
     Dosage: 3 DF, QD
     Route: 048
     Dates: start: 19950120
  25. ERYPO /00928302/ [Suspect]
     Active Substance: ERYTHROPOIETIN
     Dosage: 2000 IU, QD
     Route: 058
     Dates: start: 19950105, end: 19950105
  26. BEN?U?RON [Suspect]
     Active Substance: ACETAMINOPHEN
     Indication: PYREXIA
     Dosage: UNK
     Route: 054
     Dates: start: 19950117, end: 19950117
  27. MONO?EMBOLEX NM [Concomitant]
     Indication: THROMBOSIS PROPHYLAXIS
     Dosage: 1 DF, QD
     Route: 058
  28. TEMGESIC [Concomitant]
     Active Substance: BUPRENORPHINE HYDROCHLORIDE
     Indication: PAIN
     Dosage: UNK
     Route: 060
     Dates: start: 19950124, end: 19950124
  29. ERYTHROCIN /00020901/ [Concomitant]
     Active Substance: ERYTHROMYCIN ETHYLSUCCINATE
     Indication: INFECTION
     Dosage: 2 DF, QD
     Route: 042
     Dates: start: 19950118, end: 19950118
  30. NACL [Concomitant]
     Active Substance: SODIUM CHLORIDE
     Indication: HYPONATRAEMIA
     Dosage: UNK
     Route: 042
     Dates: start: 19950117, end: 19950117
  31. NOVALGIN (METAMIZOLE SODIUM) [Suspect]
     Active Substance: METAMIZOLE SODIUM
     Indication: PYREXIA
     Dosage: UNK
     Route: 042
     Dates: start: 19941228, end: 19941228
  32. SAROTEN [Concomitant]
     Active Substance: AMITRIPTYLINE
     Indication: DEPRESSION
     Dosage: UNK
     Route: 048
     Dates: start: 19950124
  33. NEUPOGEN [Concomitant]
     Active Substance: FILGRASTIM
     Indication: LEUKOPENIA
     Dosage: UNK
     Route: 058
     Dates: start: 19950124, end: 19950124
  34. TAZOBAC [Suspect]
     Active Substance: PIPERACILLIN SODIUM\TAZOBACTAM SODIUM
     Indication: INFECTION
     Dosage: 2 DF, QD
     Route: 042
     Dates: end: 19950101
  35. AUGMENTAN /00756801/ [Suspect]
     Active Substance: AMOXICILLIN\CLAVULANATE POTASSIUM
     Indication: INFECTION
     Dosage: 3 DF, QD
     Route: 048
     Dates: start: 19950117, end: 19950117
  36. SODIUM CITRATE. [Concomitant]
     Active Substance: SODIUM CITRATE
     Indication: METABOLIC ACIDOSIS
     Dosage: 4 DF, 1X/DAY
     Route: 048
     Dates: start: 19950119
  37. ISOPTIN [Concomitant]
     Active Substance: VERAPAMIL HYDROCHLORIDE
     Dosage: 3 DF, QD
     Route: 048
     Dates: start: 19941229, end: 19950124
  38. ERYPO /00928302/ [Suspect]
     Active Substance: ERYTHROPOIETIN
     Indication: ANAEMIA
     Dosage: 2000 IU, QD
     Route: 058
     Dates: start: 19950103, end: 19950103
  39. ERYPO /00928302/ [Suspect]
     Active Substance: ERYTHROPOIETIN
     Dosage: 2000 IU, QD
     Route: 058
     Dates: start: 19950107, end: 19950107
  40. ERYPO /00928302/ [Suspect]
     Active Substance: ERYTHROPOIETIN
     Dosage: 2000 IU, QD
     Route: 058
     Dates: start: 19950114, end: 19950114
  41. IMUREK /00001501/ [Suspect]
     Active Substance: AZATHIOPRINE
     Dosage: UNK
     Route: 048
     Dates: start: 19950119, end: 19950119
  42. LASIX [Suspect]
     Active Substance: FUROSEMIDE
     Indication: RENAL FAILURE
     Dosage: 1 DF, QD
     Route: 048
     Dates: start: 19950113
  43. DULCOLAX (BISACODYL) [Suspect]
     Active Substance: BISACODYL
     Indication: CONSTIPATION
     Dosage: UNK
     Route: 054
     Dates: start: 19950115, end: 19950115
  44. METALCAPTASE /00062501/ [Suspect]
     Active Substance: PENICILLAMINE
     Indication: SCLERODERMA
     Dosage: UNK
     Route: 048
     Dates: start: 19941229, end: 19950124
  45. ISOPTIN [Concomitant]
     Active Substance: VERAPAMIL HYDROCHLORIDE
     Indication: ARRHYTHMIA
     Dosage: 3 DF, QD
     Route: 048
     Dates: start: 19941228, end: 19941228
  46. DIFLUCAN [Concomitant]
     Active Substance: FLUCONAZOLE
     Indication: FUNGAL INFECTION
     Dosage: 200 MG, QD
     Route: 048
     Dates: start: 19950120, end: 19950124
  47. ASPIRIN (E.C.) [Suspect]
     Active Substance: ASPIRIN
     Indication: ARRHYTHMIA
     Dosage: 1 DF, QD
     Route: 048
  48. SENNA [Suspect]
     Active Substance: SENNA LEAF\SENNOSIDES\SENNOSIDES A AND B
     Indication: CONSTIPATION
     Dosage: UNK
     Route: 048
     Dates: start: 19950113, end: 19950114
  49. NATRIUMHYDROGENCARBONAT [Concomitant]
     Active Substance: SODIUM BICARBONATE
     Indication: ACIDOSIS
     Dosage: UNK
     Route: 042
     Dates: start: 19950118, end: 19950118
  50. TRAMAL [Concomitant]
     Active Substance: TRAMADOL
     Indication: PAIN
     Dosage: EAR/EYE/NOSE DROPS, SOLUTION
     Dates: start: 19950118, end: 19950121
  51. PASPERTIN /00041902/ [Concomitant]
     Active Substance: METOCLOPRAMIDE HYDROCHLORIDE
     Indication: NAUSEA
     Dosage: SOLUTION
     Route: 048
     Dates: start: 19941228, end: 19941228

REACTIONS (3)
  - Toxic epidermal necrolysis [Fatal]
  - Brain injury [Fatal]
  - Renal failure [Fatal]

NARRATIVE: CASE EVENT DATE: 19950117
